FAERS Safety Report 19906336 (Version 1)
Quarter: 2021Q3

REPORT INFORMATION
  Report Type: Spontaneous
  Country: US (occurrence: US)
  Receive Date: 20210930
  Receipt Date: 20210930
  Transmission Date: 20211014
  Serious: No
  Sender: FDA-Public Use
  Company Number: None

PATIENT

DRUGS (1)
  1. PROCALAMINE [Suspect]
     Active Substance: ALANINE\ARGININE\CALCIUM ACETATE\CYSTEINE HYDROCHLORIDE\GLYCERIN\GLYCINE\HISTIDINE\ISOLEUCINE\LEUCINE\LYSINE ACETATE\MAGNESIUM ACETATE\METHIONINE\PHENYLALANINE\PHOSPHORIC ACID\POTASSIUM CHLORIDE\PROLINE\SERINE\SODIUM ACETATE\SODIUM CHLORIDE\THREONINE\TRYPTOPHAN\VALINE

REACTIONS (2)
  - Incorrect drug administration rate [None]
  - Product dispensing error [None]
